FAERS Safety Report 5800676-8 (Version None)
Quarter: 2008Q3

REPORT INFORMATION
  Report Type: 
  Country: None (occurrence: None)
  Receive Date: 20080703
  Receipt Date: 20080624
  Transmission Date: 20090109
  Serious: Yes (Hospitalization)
  Sender: FDA-Public Use
  Company Number: DE-ROCHE-572134

PATIENT
  Sex: Female
  Weight: 54 kg

DRUGS (8)
  1. CAPECITABINE [Suspect]
     Indication: BREAST CANCER
     Dosage: GIVEN ON DAY 1-14 OF CYCLE.
     Route: 048
     Dates: start: 20080305, end: 20080527
  2. PACLITAXEL [Suspect]
     Indication: BREAST CANCER
     Route: 042
     Dates: start: 20080305, end: 20080521
  3. EPIRUBICIN [Suspect]
     Indication: BREAST CANCER
     Route: 042
     Dates: start: 20080109, end: 20080220
  4. CYCLOPHOSPHAMIDE [Suspect]
     Indication: BREAST CANCER
     Route: 042
     Dates: start: 20080109, end: 20080220
  5. EPOETIN BETA [Suspect]
     Indication: HAEMOGLOBIN DECREASED
     Route: 058
     Dates: start: 20080109
  6. EPOETIN BETA [Suspect]
     Route: 058
  7. EPOETIN BETA [Suspect]
     Route: 058
     Dates: end: 20080514
  8. NEULASTA [Concomitant]
     Route: 058
     Dates: start: 20080109, end: 20080220

REACTIONS (1)
  - FACIAL PALSY [None]
